FAERS Safety Report 5051418-8 (Version None)
Quarter: 2006Q3

REPORT INFORMATION
  Report Type: 
  Country: None (occurrence: None)
  Receive Date: 20060714
  Receipt Date: 20060705
  Transmission Date: 20061208
  Serious: Yes (Hospitalization, Congenital Anomaly)
  Sender: FDA-Public Use
  Company Number: 2006UW13922

PATIENT
  Age: 23631 Day
  Sex: Male
  Weight: 82.5 kg

DRUGS (3)
  1. IRESSA [Suspect]
     Indication: METASTATIC NEOPLASM
     Route: 048
     Dates: start: 20060517, end: 20060602
  2. COUMADIN [Concomitant]
     Indication: PROPHYLAXIS
     Route: 048
     Dates: start: 20050101
  3. PREVACID [Concomitant]
     Indication: GASTROOESOPHAGEAL REFLUX DISEASE
     Route: 048
     Dates: start: 20030101

REACTIONS (6)
  - ABDOMINAL PAIN UPPER [None]
  - BLOOD PRESSURE INCREASED [None]
  - JAUNDICE [None]
  - NAUSEA [None]
  - PANCREATITIS [None]
  - VOMITING [None]
